FAERS Safety Report 6208748-3 (Version None)
Quarter: 2009Q2

REPORT INFORMATION
  Report Type: 
  Country: None (occurrence: None)
  Receive Date: 20090529
  Receipt Date: 20090527
  Transmission Date: 20091009
  Serious: Yes (Hospitalization)
  Sender: FDA-Public Use
  Company Number: US-BRISTOL-MYERS SQUIBB COMPANY-14639108

PATIENT
  Age: 51 Year
  Sex: Female

DRUGS (6)
  1. ERBITUX [Suspect]
     Indication: HEAD AND NECK CANCER
     Route: 042
     Dates: start: 20090526, end: 20090526
  2. CISPLATIN [Suspect]
     Indication: HEAD AND NECK CANCER
     Dates: start: 20090501, end: 20090501
  3. RADIATION THERAPY [Concomitant]
  4. BENADRYL [Concomitant]
     Indication: PREMEDICATION
     Route: 042
  5. ZOFRAN [Concomitant]
     Indication: PREMEDICATION
     Route: 042
  6. DECADRON [Concomitant]
     Indication: PREMEDICATION
     Route: 042

REACTIONS (2)
  - MENINGITIS ASEPTIC [None]
  - OTOTOXICITY [None]
